FAERS Safety Report 6962135-9 (Version None)
Quarter: 2010Q3

REPORT INFORMATION
  Report Type: 
  Country: None (occurrence: None)
  Receive Date: 20100830
  Receipt Date: 20100812
  Transmission Date: 20110219
  Serious: Yes (Other)
  Sender: FDA-Public Use
  Company Number: DSA_43814_2010

PATIENT
  Age: 79 Year
  Sex: Female

DRUGS (1)
  1. BUPROPION HCL [Suspect]
     Indication: DEPRESSION
     Dosage: (150 MG QD ORAL)
     Route: 048
     Dates: start: 20100409, end: 20100604

REACTIONS (3)
  - NEUROSENSORY HYPOACUSIS [None]
  - TINNITUS [None]
  - VERTIGO [None]
